FAERS Safety Report 24028319 (Version 1)
Quarter: 2024Q2

REPORT INFORMATION
  Report Type: Spontaneous
  Country: US (occurrence: US)
  Receive Date: 20240628
  Receipt Date: 20240628
  Transmission Date: 20240716
  Serious: Yes (Other)
  Sender: FDA-Public Use
  Company Number: US-MYLANLABS-2024M1058572

PATIENT
  Age: 60 Year
  Sex: Male
  Weight: 73 kg

DRUGS (4)
  1. TENOFOVIR DISOPROXIL [Suspect]
     Active Substance: TENOFOVIR DISOPROXIL
     Indication: HIV infection
     Dosage: UNK
     Route: 065
  2. LAMIVUDINE [Suspect]
     Active Substance: LAMIVUDINE
     Indication: HIV infection
     Dosage: UNK
     Route: 065
  3. SOFOSBUVIR [Concomitant]
     Active Substance: SOFOSBUVIR
     Indication: Antiretroviral therapy
     Dosage: UNK; 12 WEEK COURSE
     Route: 065
  4. VELPATASVIR [Concomitant]
     Active Substance: VELPATASVIR
     Indication: Antiretroviral therapy
     Dosage: UNK; 12 WEEK COURSE
     Route: 065

REACTIONS (3)
  - Toxicity to various agents [Unknown]
  - End stage renal disease [Unknown]
  - Drug ineffective [Unknown]
